FAERS Safety Report 5368975-4 (Version None)
Quarter: 2007Q2

REPORT INFORMATION
  Report Type: 
  Country: None (occurrence: None)
  Receive Date: 20070625
  Receipt Date: 20061108
  Transmission Date: 20071010
  Serious: No
  Sender: FDA-Public Use
  Company Number: US-ASTRAZENECA-2006UW23612

PATIENT
  Age: 64 Year
  Sex: Male
  Weight: 109.8 kg

DRUGS (2)
  1. CRESTOR [Suspect]
     Indication: BLOOD CHOLESTEROL INCREASED
     Route: 048
     Dates: start: 20040101
  2. MULTIVITAMIN [Concomitant]

REACTIONS (3)
  - ASTHENIA [None]
  - MYALGIA [None]
  - WEIGHT INCREASED [None]
